FAERS Safety Report 7324230-4 (Version None)
Quarter: 2011Q1

REPORT INFORMATION
  Report Type: 
  Country: None (occurrence: None)
  Receive Date: 20110301
  Receipt Date: 20110224
  Transmission Date: 20110831
  Serious: Yes (Death, Other)
  Sender: FDA-Public Use
  Company Number: US-AMGEN-USASP2011010901

PATIENT
  Sex: Female

DRUGS (3)
  1. NPLATE [Suspect]
     Indication: IDIOPATHIC THROMBOCYTOPENIC PURPURA
     Dates: start: 20080908, end: 20081002
  2. CORTICOSTEROIDS [Concomitant]
     Dosage: UNK
     Dates: start: 20080801
  3. RITUXIMAB [Concomitant]
     Dosage: UNK
     Dates: start: 20080801

REACTIONS (3)
  - DRUG INEFFECTIVE [None]
  - DEATH [None]
  - MYELODYSPLASTIC SYNDROME [None]
